FAERS Safety Report 14525801 (Version 1)
Quarter: 2018Q1

REPORT INFORMATION
  Report Type: Spontaneous
  Country: US (occurrence: US)
  Receive Date: 20180211
  Receipt Date: 20180211
  Transmission Date: 20180509
  Serious: Yes (Other)
  Sender: FDA-Public Use
  Company Number: None

PATIENT
  Age: 17 Year
  Sex: Female
  Weight: 54 kg

DRUGS (2)
  1. IRON [Concomitant]
     Active Substance: IRON
  2. HYDROQUINONE USP, 4% [Suspect]
     Active Substance: HYDROQUINONE
     Indication: ACNE
     Dosage: QUANTITY:2 CREAM;?
     Route: 061
     Dates: start: 20180210, end: 20180211

REACTIONS (3)
  - Incorrect route of drug administration [None]
  - Application site pruritus [None]
  - Application site erythema [None]

NARRATIVE: CASE EVENT DATE: 20180210
